FAERS Safety Report 5005169-6 (Version None)
Quarter: 2006Q2

REPORT INFORMATION
  Report Type: 
  Country: None (occurrence: None)
  Receive Date: 20060518
  Receipt Date: 20060418
  Transmission Date: 20061013
  Serious: Yes (Other)
  Sender: FDA-Public Use
  Company Number: FRWYE560718APR06

PATIENT
  Age: 70 Year
  Sex: Male

DRUGS (3)
  1. ENBREL [Suspect]
     Indication: PSORIASIS
     Dosage: UNKNOWN
     Route: 058
  2. RADIATION THERAPY [Suspect]
     Indication: PSORIASIS
  3. CYCLOSPORINE [Suspect]
     Indication: PSORIASIS

REACTIONS (2)
  - PENIS CARCINOMA [None]
  - SCROTAL CANCER [None]
